FAERS Safety Report 4854253-6 (Version None)
Quarter: 2005Q4

REPORT INFORMATION
  Report Type: 
  Country: None (occurrence: None)
  Receive Date: 20051213
  Receipt Date: 20061206
  Transmission Date: 20060501
  Serious: Yes (Death)
  Sender: FDA-Public Use
  Company Number: 163-20785-05100060

PATIENT
  Age: 66 Year
  Sex: Male

DRUGS (1)
  1. THALOMID [Suspect]
     Indication: GRAFT VERSUS HOST DISEASE
     Dosage: 200 MG, QHS, ORAL
     Route: 048
     Dates: start: 20041223, end: 20050104

REACTIONS (2)
  - COMPLICATIONS OF TRANSPLANT SURGERY [None]
  - DRUG INEFFECTIVE [None]
